FAERS Safety Report 7493445-7 (Version None)
Quarter: 2011Q2

REPORT INFORMATION
  Report Type: 
  Country: None (occurrence: None)
  Receive Date: 20110519
  Receipt Date: 20110519
  Transmission Date: 20111010
  Serious: Yes (Other)
  Sender: FDA-Public Use
  Company Number: None

PATIENT
  Sex: Female
  Weight: 103.4201 kg

DRUGS (2)
  1. LANTUS [Suspect]
     Indication: DIABETES MELLITUS
     Dosage: LANTUS 1X/D SUBQ MANY YEARS
     Route: 058
  2. HUMALOG [Concomitant]

REACTIONS (1)
  - PAIN IN EXTREMITY [None]
